FAERS Safety Report 6304926-3 (Version None)
Quarter: 2009Q3

REPORT INFORMATION
  Report Type: 
  Country: None (occurrence: None)
  Receive Date: 20090811
  Receipt Date: 20090803
  Transmission Date: 20100115
  Serious: Yes (Hospitalization)
  Sender: FDA-Public Use
  Company Number: US-AVENTIS-200916940US

PATIENT
  Sex: Female

DRUGS (2)
  1. LANTUS [Suspect]
     Route: 058
     Dates: start: 20080601, end: 20090729
  2. LANTUS [Suspect]
     Route: 058
     Dates: start: 20090801

REACTIONS (1)
  - HEART RATE IRREGULAR [None]
